FAERS Safety Report 7522220-X (Version None)
Quarter: 2011Q2

REPORT INFORMATION
  Report Type: 
  Country: None (occurrence: None)
  Receive Date: 20110603
  Receipt Date: 20090622
  Transmission Date: 20111010
  Serious: Yes (Other)
  Sender: FDA-Public Use
  Company Number: US-BAYER-2011-010190

PATIENT
  Age: 59 Year
  Sex: Male
  Weight: 118.37 kg

DRUGS (24)
  1. TRASYLOL [Suspect]
     Dosage: 50 ML/HOUR INFUSION
     Route: 042
     Dates: start: 20070327, end: 20070327
  2. VERSED [Concomitant]
     Dosage: 1-3MG
     Route: 042
     Dates: start: 20070327, end: 20070327
  3. ZINACEF [Concomitant]
     Dosage: 1.5 GRAM
     Route: 042
     Dates: start: 20070403
  4. TRASYLOL [Suspect]
     Indication: CORONARY ARTERY BYPASS
     Dosage: 200 ML, ONCE, LOADING DOSE
     Route: 042
     Dates: start: 20070327, end: 20070327
  5. LOPRESSOR [Concomitant]
  6. ALBUMIN (HUMAN) [Concomitant]
     Dosage: 5% IN 250CC BOTTLE
     Route: 042
     Dates: start: 20070403, end: 20070403
  7. KANTREX [Concomitant]
     Dosage: 3 GRAMS IN 3000CC NORMAL SALINE
     Route: 042
     Dates: start: 20070330, end: 20070330
  8. KANAMYCIN [Concomitant]
     Dosage: UNK
     Route: 042
     Dates: start: 20070327, end: 20070327
  9. INSULIN [Concomitant]
  10. SODIUM BICARBONATE [Concomitant]
     Dosage: 50MILLIEQUIVALENTS
     Route: 042
     Dates: start: 20070327, end: 20070327
  11. HEPARIN [Concomitant]
     Dosage: 1000 UNITS
     Route: 042
     Dates: start: 20070322, end: 20070322
  12. HEPARIN [Concomitant]
     Dosage: 10,000UNITS
     Route: 042
     Dates: start: 20070330
  13. PLAVIX [Concomitant]
  14. NITROGLYCERIN [Concomitant]
  15. PROTAMINE SULFATE [Concomitant]
     Route: 042
  16. HEPARIN [Concomitant]
     Dosage: 500 UNITS IN 50CC
     Route: 042
     Dates: start: 20070330
  17. AMICAR [Concomitant]
     Indication: VASCULAR GRAFT
     Dosage: UNK
     Dates: start: 20000101
  18. RED BLOOD CELLS [Concomitant]
     Dosage: 15 U, ONCE
     Route: 042
     Dates: start: 20070327
  19. CRYOPRECIPITATES [Concomitant]
     Dosage: 2 U, ONCE
     Route: 042
     Dates: start: 20070327
  20. PLATELETS [Concomitant]
     Dosage: 2 U, ONCE
     Route: 042
     Dates: start: 20070327
  21. VANCOMYCIN [Concomitant]
     Dosage: 1 GRAM
     Route: 042
     Dates: end: 20070408
  22. FENTANYL [Concomitant]
     Route: 042
  23. PLASMA [Concomitant]
     Dosage: 5 U, ONCE
     Route: 042
     Dates: start: 20070327
  24. ACETYLSALICYLIC ACID SRT [Concomitant]
     Dosage: 325 MG, QD
     Route: 048

REACTIONS (12)
  - STRESS [None]
  - MULTI-ORGAN FAILURE [None]
  - UNEVALUABLE EVENT [None]
  - INJURY [None]
  - ANXIETY [None]
  - PAIN [None]
  - DEPRESSION [None]
  - RENAL FAILURE [None]
  - RENAL IMPAIRMENT [None]
  - RENAL INJURY [None]
  - EMOTIONAL DISTRESS [None]
  - FEAR [None]
